FAERS Safety Report 6718584-7 (Version None)
Quarter: 2010Q2

REPORT INFORMATION
  Report Type: 
  Country: None (occurrence: None)
  Receive Date: 20100503
  Receipt Date: 20100420
  Transmission Date: 20101027
  Serious: Yes (Death, Hospitalization)
  Sender: FDA-Public Use
  Company Number: 2009AC000087

PATIENT
  Age: 36 Year
  Sex: Male

DRUGS (24)
  1. DIGOXIN [Suspect]
     Indication: DRUG USE FOR UNKNOWN INDICATION
     Dosage: 0.25 MG,BID; PO
     Route: 048
     Dates: start: 20040701, end: 20080301
  2. DILACOR XR [Concomitant]
  3. LODINE [Concomitant]
  4. DILTIAZEM HCL [Concomitant]
  5. TENORMIN [Concomitant]
  6. ASPIRIN [Concomitant]
  7. PREVACID [Concomitant]
  8. ALLOPURINOL [Concomitant]
  9. CARTIA XT [Concomitant]
  10. ZOVIRAX [Concomitant]
  11. LOVASTATIN [Concomitant]
  12. PROTONIX [Concomitant]
  13. ASPIRIN [Concomitant]
  14. IBUPROFEN [Concomitant]
  15. SIMVASTATIN [Concomitant]
  16. SIMVASTATIN [Concomitant]
  17. ADENOSINE [Concomitant]
  18. INDOCIN [Concomitant]
  19. ZANTAC [Concomitant]
  20. KEFLEX [Concomitant]
  21. AMIODARONE [Concomitant]
  22. VOLTRAN [Concomitant]
  23. VICONDIN [Concomitant]
  24. WARFARIN SODIUM [Concomitant]

REACTIONS (56)
  - ALCOHOL USE [None]
  - ANXIETY [None]
  - APATHY [None]
  - ARTERIOSCLEROSIS [None]
  - ASTHENIA [None]
  - ATRIAL FIBRILLATION [None]
  - BACK PAIN [None]
  - BLOOD CHOLESTEROL INCREASED [None]
  - BLOOD UREA INCREASED [None]
  - BRAIN OEDEMA [None]
  - CARDIAC ARREST [None]
  - CARDIOMEGALY [None]
  - CERVICAL SPINAL STENOSIS [None]
  - CYANOSIS [None]
  - DEPRESSIVE SYMPTOM [None]
  - DIVERTICULUM INTESTINAL [None]
  - DYSPEPSIA [None]
  - ECONOMIC PROBLEM [None]
  - EMOTIONAL DISTRESS [None]
  - FATIGUE [None]
  - FEELING ABNORMAL [None]
  - FEELING COLD [None]
  - GOUT [None]
  - HEPATIC STEATOSIS [None]
  - HEPATOMEGALY [None]
  - HYPERHIDROSIS [None]
  - HYPERTENSION [None]
  - HYPERURICAEMIA [None]
  - INTERVERTEBRAL DISC DEGENERATION [None]
  - INTERVERTEBRAL DISC PROTRUSION [None]
  - LEFT VENTRICULAR HYPERTROPHY [None]
  - MYALGIA [None]
  - MYOCARDIAL FIBROSIS [None]
  - MYOCARDIAL INFARCTION [None]
  - NAUSEA [None]
  - NERVE ROOT COMPRESSION [None]
  - NIGHT SWEATS [None]
  - NON-CARDIAC CHEST PAIN [None]
  - OBESITY [None]
  - OEDEMA [None]
  - OEDEMA PERIPHERAL [None]
  - PAIN [None]
  - PALPITATIONS [None]
  - PERIPHERAL COLDNESS [None]
  - PROTHROMBIN TIME PROLONGED [None]
  - PULMONARY CONGESTION [None]
  - PULMONARY OEDEMA [None]
  - RADICULOPATHY [None]
  - RESPIRATION ABNORMAL [None]
  - SPINAL OSTEOARTHRITIS [None]
  - STRESS AT WORK [None]
  - THERAPEUTIC AGENT TOXICITY [None]
  - UNEVALUABLE EVENT [None]
  - VENTRICULAR ARRHYTHMIA [None]
  - VISUAL ACUITY REDUCED [None]
  - VISUAL IMPAIRMENT [None]
